FAERS Safety Report 6136305-6 (Version None)
Quarter: 2009Q1

REPORT INFORMATION
  Report Type: 
  Country: None (occurrence: None)
  Receive Date: 20090330
  Receipt Date: 20090326
  Transmission Date: 20090719
  Serious: Yes (Death, Other)
  Sender: FDA-Public Use
  Company Number: US-BRISTOL-MYERS SQUIBB COMPANY-14541098

PATIENT
  Age: 68 Year
  Sex: Male

DRUGS (25)
  1. ORENCIA [Suspect]
     Route: 042
     Dates: start: 20070215, end: 20090115
  2. AMIODARONE HCL [Suspect]
     Dates: start: 20090128
  3. GLUCOSAMINE SULFATE + MSM [Concomitant]
     Dates: start: 20070917, end: 20090115
  4. MELATONIN [Concomitant]
     Dates: start: 20070917, end: 20090115
  5. MULTI-VITAMIN [Concomitant]
     Dates: start: 20070917, end: 20081125
  6. PREDNISONE [Concomitant]
     Dosage: 1MG ON 17-SEP-07 5MG FROM 17-OCT-07 TO 28-OCT-08
     Dates: start: 20070917
  7. SEPTRA DS [Concomitant]
  8. VYTORIN [Concomitant]
     Dates: start: 20070917, end: 20090115
  9. WARFARIN SODIUM [Concomitant]
  10. ACTOS [Concomitant]
     Dosage: HAD RECEIVED PIOGLITAZONE HCL AT DOSES 15, 45MG AND 30 (UNITS NOT SPECIFIED)
     Dates: start: 20070917, end: 20090115
  11. ALLOPURINOL [Concomitant]
     Dates: start: 20070917, end: 20090115
  12. ATENOLOL [Concomitant]
     Dates: start: 20070917, end: 20090115
  13. VITAMIN B-12 [Concomitant]
     Dosage: FORMULATION: INJECTION
     Dates: start: 20070917, end: 20090115
  14. CALTRATE + D [Concomitant]
     Dosage: CALTRATE 600 + D 400
     Dates: start: 20070917, end: 20090115
  15. CIPROFLOXACIN HCL [Concomitant]
     Dates: start: 20070917, end: 20090115
  16. CYMBALTA [Concomitant]
     Dosage: HAD ALSO TAKEN A DOSE OF 60 (UNITS NOT SPECIFIED)
     Dates: start: 20070917, end: 20090115
  17. COZAAR [Concomitant]
     Dates: start: 20070917, end: 20090115
  18. DOXAZOSIN MESYLATE [Concomitant]
     Dates: start: 20070917, end: 20090115
  19. AREDIA [Concomitant]
  20. FUROSEMIDE [Concomitant]
     Dates: start: 20070917, end: 20090115
  21. HYDROCODONE BITARTRATE [Concomitant]
     Dosage: 1 DOSAGE FORM = 5/500 (UNITS NOT SPECIFIED)
     Dates: start: 20070917, end: 20090115
  22. GLYBURIDE [Concomitant]
  23. JANUVIA [Concomitant]
     Dates: start: 20070917
  24. FLOMAX [Concomitant]
  25. RECLAST [Concomitant]

REACTIONS (5)
  - ACUTE INTERSTITIAL PNEUMONITIS [None]
  - DIFFUSE ALVEOLAR DAMAGE [None]
  - SEPTIC SHOCK [None]
  - SPUTUM CULTURE POSITIVE [None]
  - STAPHYLOCOCCAL INFECTION [None]
